FAERS Safety Report 15334421 (Version 1)
Quarter: 2018Q3

REPORT INFORMATION
  Report Type: Spontaneous
  Country: US (occurrence: US)
  Receive Date: 20180830
  Receipt Date: 20180830
  Transmission Date: 20181010
  Serious: No
  Sender: FDA-Public Use
  Company Number: US-PFIZER INC-2018346392

PATIENT
  Age: 8 Year
  Sex: Male

DRUGS (1)
  1. GENOTROPIN [Suspect]
     Active Substance: SOMATROPIN
     Indication: RENAL DISORDER
     Dosage: 1.2 MG, DAILY
     Dates: start: 20170508

REACTIONS (14)
  - Heart rate increased [Unknown]
  - Aspartate aminotransferase increased [Unknown]
  - Product use in unapproved indication [Unknown]
  - Respiratory rate decreased [Unknown]
  - Blood creatinine increased [Unknown]
  - Iron binding capacity total increased [Unknown]
  - Haematocrit decreased [Unknown]
  - Blood parathyroid hormone increased [Unknown]
  - Insulin-like growth factor increased [Unknown]
  - Blood alkaline phosphatase increased [Unknown]
  - Red blood cell count decreased [Unknown]
  - Mean platelet volume increased [Unknown]
  - Blood glucose increased [Unknown]
  - Blood urea increased [Unknown]

NARRATIVE: CASE EVENT DATE: 20170508
